FAERS Safety Report 23649277 (Version 1)
Quarter: 2024Q1

REPORT INFORMATION
  Report Type: Spontaneous
  Country: PL (occurrence: PL)
  Receive Date: 20240319
  Receipt Date: 20240319
  Transmission Date: 20240410
  Serious: Yes (Other)
  Sender: FDA-Public Use
  Company Number: PL-AMGEN-POLSP2024050879

PATIENT
  Age: 58 Year
  Sex: Female

DRUGS (9)
  1. NPLATE [Suspect]
     Active Substance: ROMIPLOSTIM
     Indication: Immune thrombocytopenia
     Dosage: UNK UNK, Q2WK
     Route: 065
     Dates: start: 202112
  2. NPLATE [Suspect]
     Active Substance: ROMIPLOSTIM
     Dosage: EVERY 2-3 WEEKS
     Route: 065
  3. METOPROLOL SUCCINATE [Concomitant]
     Active Substance: METOPROLOL SUCCINATE
     Dosage: 50 MILLIGRAM, QD (IN THE MORNING ON AN EMPTY STOMACH)
  4. PULSAREN [Concomitant]
     Dosage: 20 MILLIGRAM, QD (IN THE MORNING)
  5. LERCANIDIPINE [Concomitant]
     Active Substance: LERCANIDIPINE
     Dosage: 10 MILLIGRAM, QD (IN THE MORNING)
  6. SPIRONOLACTONE [Concomitant]
     Active Substance: SPIRONOLACTONE
     Dosage: 50 MILLIGRAM, QD  (IN THE EVENING)
  7. ZOLOFT [Concomitant]
     Active Substance: SERTRALINE HYDROCHLORIDE
     Dosage: 50 MILLIGRAM, QD (IN THE EVENING)
  8. Neurovit [Concomitant]
     Dosage: IN THE MORNING, 2XL TABLETS
  9. DEXAMETHASONE [Concomitant]
     Active Substance: DEXAMETHASONE
     Dosage: 20 MILLIGRAM
     Dates: start: 202209

REACTIONS (9)
  - Thrombocytopenia [Unknown]
  - Ill-defined disorder [Unknown]
  - White blood cell count increased [Unknown]
  - Red blood cell count increased [Unknown]
  - Platelet count increased [Unknown]
  - Neutrophil count increased [Unknown]
  - Respiratory tract infection [Unknown]
  - Hepatomegaly [Unknown]
  - Skin haemorrhage [Unknown]
